FAERS Safety Report 25265541 (Version 1)
Quarter: 2025Q2

REPORT INFORMATION
  Report Type: Spontaneous
  Country: US (occurrence: US)
  Receive Date: 20250502
  Receipt Date: 20250502
  Transmission Date: 20250716
  Serious: Yes (Other)
  Sender: MADRIGAL PHARMACEUTICALS
  Company Number: US-MADRIGAL PHARMACEUTICALS, INC-2025REZ3574

PATIENT

DRUGS (12)
  1. REZDIFFRA [Suspect]
     Active Substance: RESMETIROM
     Indication: Metabolic dysfunction-associated steatohepatitis
     Dosage: 100 MILLIGRAM, QD
     Route: 048
     Dates: start: 202408, end: 20250214
  2. MAGNESIUM [Suspect]
     Active Substance: MAGNESIUM
     Indication: Supplementation therapy
  3. PROTONIX [Concomitant]
     Active Substance: PANTOPRAZOLE SODIUM
  4. MOBIC [Concomitant]
     Active Substance: MELOXICAM
  5. METOPROLOL [Concomitant]
     Active Substance: METOPROLOL
  6. FLOMAX [Concomitant]
     Active Substance: TAMSULOSIN HYDROCHLORIDE
  7. ELIQUIS [Concomitant]
     Active Substance: APIXABAN
  8. PROSCAR [Concomitant]
     Active Substance: FINASTERIDE
  9. CRESTOR [Concomitant]
     Active Substance: ROSUVASTATIN CALCIUM
  10. BENICAR [Concomitant]
     Active Substance: OLMESARTAN MEDOXOMIL
  11. PEPCID [Concomitant]
     Active Substance: FAMOTIDINE
  12. TIZANIDINE [Concomitant]
     Active Substance: TIZANIDINE

REACTIONS (3)
  - Suspected drug-induced liver injury [Recovering/Resolving]
  - Alanine aminotransferase increased [Not Recovered/Not Resolved]
  - Aspartate aminotransferase increased [Not Recovered/Not Resolved]

NARRATIVE: CASE EVENT DATE: 20250201
